FAERS Safety Report 15336071 (Version 1)
Quarter: 2018Q3

REPORT INFORMATION
  Report Type: Spontaneous
  Country: US (occurrence: US)
  Receive Date: 20180827
  Receipt Date: 20180827
  Transmission Date: 20181010
  Serious: Yes (Other)
  Sender: FDA-Public Use
  Company Number: None

PATIENT
  Age: 48 Year
  Sex: Female

DRUGS (13)
  1. ENBREL [Suspect]
     Active Substance: ETANERCEPT
     Indication: RHEUMATOID ARTHRITIS
     Route: 058
     Dates: start: 20140812
  2. NAPROXEN. [Concomitant]
     Active Substance: NAPROXEN
  3. SINGULAIR [Suspect]
     Active Substance: MONTELUKAST SODIUM
  4. PRIMROSE OIL [Concomitant]
  5. VITAMIN D3 [Concomitant]
     Active Substance: CHOLECALCIFEROL
  6. LISINOPRIL. [Concomitant]
     Active Substance: LISINOPRIL
  7. FOLIC ACID. [Concomitant]
     Active Substance: FOLIC ACID
  8. CRANBERRY. [Concomitant]
     Active Substance: CRANBERRY
  9. NEXIUM [Concomitant]
     Active Substance: ESOMEPRAZOLE MAGNESIUM
  10. LEUCOVOR CA [Concomitant]
  11. METHOTREXATE. [Concomitant]
     Active Substance: METHOTREXATE
  12. SYNTHROID [Concomitant]
     Active Substance: LEVOTHYROXINE SODIUM
  13. BIOTIN [Concomitant]
     Active Substance: BIOTIN

REACTIONS (2)
  - Thyroid cancer [None]
  - Therapy cessation [None]
